FAERS Safety Report 4312546-5 (Version None)
Quarter: 2004Q1

REPORT INFORMATION
  Report Type: 
  Country: None (occurrence: None)
  Receive Date: 20040305
  Receipt Date: 20040301
  Transmission Date: 20041129
  Serious: Yes (Death, Other)
  Sender: FDA-Public Use
  Company Number: PHFR2004GB01196

PATIENT
  Age: 33 Year
  Sex: Male

DRUGS (5)
  1. CLOZARIL [Suspect]
     Indication: SCHIZOPHRENIA
     Dosage: 100MG MANE/ 200MG NOCTE
     Route: 048
     Dates: start: 20030516
  2. BENZHEXOL [Concomitant]
     Indication: EXTRAPYRAMIDAL DISORDER
     Dosage: 2 MG, BID
     Route: 048
     Dates: start: 20030602
  3. RISPERIDONE [Concomitant]
     Indication: SCHIZOPHRENIA
     Dosage: 50 MG, BIW
     Route: 030
     Dates: start: 20030101, end: 20030509
  4. RISPERDAL [Concomitant]
     Indication: SCHIZOPHRENIA
     Dosage: 2 MG, BID
     Route: 048
     Dates: start: 20020101, end: 20030516
  5. DEPAKOTE [Concomitant]
     Indication: MANIA
     Dosage: 750MG/NOCTE
     Route: 048
     Dates: start: 20020101, end: 20030515

REACTIONS (3)
  - EOSINOPHILIC MYOCARDITIS [None]
  - NEUTROPHIL COUNT INCREASED [None]
  - WHITE BLOOD CELL COUNT INCREASED [None]
